FAERS Safety Report 9537810 (Version 1)
Quarter: 2013Q3

REPORT INFORMATION
  Report Type: Report from Study
  Country: US (occurrence: US)
  Receive Date: 20130919
  Receipt Date: 20130919
  Transmission Date: 20140515
  Serious: Yes (Hospitalization)
  Sender: FDA-Public Use
  Company Number: US-BRISTOL-MYERS SQUIBB COMPANY-19421932

PATIENT
  Age: 40 Year
  Sex: Male

DRUGS (3)
  1. CARBOPLATIN [Suspect]
     Indication: METASTATIC SQUAMOUS CELL CARCINOMA
     Dates: start: 20130103
  2. TAXOL [Suspect]
     Indication: METASTATIC SQUAMOUS CELL CARCINOMA
     Dates: start: 20130103
  3. TORISEL [Suspect]
     Indication: METASTATIC SQUAMOUS CELL CARCINOMA
     Dates: start: 20130103

REACTIONS (1)
  - Pyrexia [Unknown]
